FAERS Safety Report 7819298-2 (Version None)
Quarter: 2011Q4

REPORT INFORMATION
  Report Type: 
  Country: None (occurrence: None)
  Receive Date: 20111018
  Receipt Date: 20110228
  Transmission Date: 20120403
  Serious: Yes (Hospitalization)
  Sender: FDA-Public Use
  Company Number: US-ASTRAZENECA-2011SE03086

PATIENT
  Age: 89 Year
  Sex: Female

DRUGS (5)
  1. SINGULAIR [Concomitant]
  2. BOVANA [Concomitant]
  3. SYMBICORT [Suspect]
     Dosage: 160/4.5MCG, 2 PUFFS BID
     Route: 055
  4. NEXIUM [Concomitant]
  5. SPIRIVA [Concomitant]

REACTIONS (1)
  - INFLUENZA [None]
